FAERS Safety Report 5940645-0 (Version None)
Quarter: 2008Q4

REPORT INFORMATION
  Report Type: 
  Country: None (occurrence: None)
  Receive Date: 20081030
  Receipt Date: 20081022
  Transmission Date: 20090506
  Serious: Yes (Hospitalization)
  Sender: FDA-Public Use
  Company Number: GXKR2008GB10106

PATIENT
  Age: 55 Year
  Sex: Female
  Weight: 75 kg

DRUGS (5)
  1. CLONIDINE [Suspect]
     Indication: MENOPAUSAL SYMPTOMS
     Dosage: 50 MG, BID, ORAL
     Route: 048
  2. ALVERINE (ALVERINE) [Suspect]
     Dosage: 3 PER DAY,
  3. LEVOTHYROXINE SODIUM [Concomitant]
  4. MEBEVERINE (MEBEVERINE) [Concomitant]
  5. OMEPRAZOLE [Concomitant]

REACTIONS (3)
  - ABDOMINAL PAIN [None]
  - JAUNDICE [None]
  - LIVER FUNCTION TEST ABNORMAL [None]
